FAERS Safety Report 18989924 (Version 1)
Quarter: 2021Q1

REPORT INFORMATION
  Report Type: Spontaneous
  Country: FR (occurrence: FR)
  Receive Date: 20210310
  Receipt Date: 20210310
  Transmission Date: 20210420
  Serious: Yes (Death, Other)
  Sender: FDA-Public Use
  Company Number: FR-ROCHE-2783761

PATIENT

DRUGS (14)
  1. RITUXIMAB. [Suspect]
     Active Substance: RITUXIMAB
     Indication: DIFFUSE LARGE B-CELL LYMPHOMA
     Dosage: 375 MG/M2, EVERY 21 DAYS (D1 EVERY 21 DAYS) SUBSEQUENT DOSE ON 17/MAR/2020 AND 07/APR/2020
     Route: 041
     Dates: start: 20200220
  2. BENDAMUSTINE [Suspect]
     Active Substance: BENDAMUSTINE
     Indication: DIFFUSE LARGE B-CELL LYMPHOMA
     Dosage: 90 MG/M2 EVERY 10 DAYS (D1 AND D2 EVERY 21 DAYS) SUBSEQUENT DOSE ON 17/MAR/2020 AND 07/APR/2020
     Route: 065
     Dates: start: 20200221
  3. LANTUS [Concomitant]
     Active Substance: INSULIN GLARGINE
  4. PENTACARINAT [Concomitant]
     Active Substance: PENTAMIDINE ISETHIONATE
     Indication: PROPHYLAXIS
     Dosage: 1 DF, MONTHLY
     Route: 055
     Dates: start: 20180401
  5. OXYNORM [Concomitant]
     Active Substance: OXYCODONE HYDROCHLORIDE
     Dosage: 10 MG EVERY 0.16 DAY
  6. ZOLPIDEM [Concomitant]
     Active Substance: ZOLPIDEM TARTRATE
     Dosage: 10 MG, QD
  7. TERCIAN [Concomitant]
     Active Substance: CYAMEMAZINE
     Dosage: 30 DROP, QD
  8. POLATUZUMAB VEDOTIN. [Suspect]
     Active Substance: POLATUZUMAB VEDOTIN
     Indication: DIFFUSE LARGE B-CELL LYMPHOMA
     Dosage: 1.8 MG/KG EVERY 21 DAYS (ONGOING) SUBSEQUENT DOSE ON 17/MAR/2020 AND 08/APR/2020
     Route: 065
     Dates: start: 20200221
  9. LANSOPRAZOLE. [Concomitant]
     Active Substance: LANSOPRAZOLE
     Indication: GASTROINTESTINAL DISORDER PROPHYLAXIS
     Dosage: 20 MG, QD
     Route: 048
     Dates: start: 20190105
  10. CORTANCYL [Concomitant]
     Active Substance: PREDNISONE
     Dosage: 40 MG, QD
     Route: 048
     Dates: start: 20190105
  11. OXYCONTIN [Concomitant]
     Active Substance: OXYCODONE HYDROCHLORIDE
     Dosage: 30 MG EVERY 0.5 DAY
  12. TINZAPARIN [Concomitant]
     Active Substance: TINZAPARIN
  13. PELMEG [Concomitant]
     Active Substance: PEGFILGRASTIM
     Dosage: 6 MG
     Dates: start: 20200224
  14. ZELITREX [Concomitant]
     Active Substance: VALACYCLOVIR HYDROCHLORIDE
     Indication: PROPHYLAXIS
     Dosage: 500 MG, EVERY 0.5 DAY
     Route: 048
     Dates: start: 20180401

REACTIONS (2)
  - Pneumonia [Unknown]
  - Death [Fatal]

NARRATIVE: CASE EVENT DATE: 20200228
